FAERS Safety Report 7674231-1 (Version None)
Quarter: 2011Q3

REPORT INFORMATION
  Report Type: 
  Country: None (occurrence: None)
  Receive Date: 20110810
  Receipt Date: 20110803
  Transmission Date: 20111222
  Serious: Yes (Other)
  Sender: FDA-Public Use
  Company Number: US-ELI_LILLY_AND_COMPANY-US201007007856

PATIENT
  Sex: Female
  Weight: 81.633 kg

DRUGS (2)
  1. BYETTA [Suspect]
     Dosage: 5 UG, BID
     Dates: start: 20071101, end: 20090728
  2. BYETTA [Suspect]
     Dosage: 10 UG, UNK

REACTIONS (3)
  - RENAL FAILURE ACUTE [None]
  - RENAL FAILURE [None]
  - PANCREATITIS [None]
